FAERS Safety Report 18651488 (Version 1)
Quarter: 2020Q4

REPORT INFORMATION
  Report Type: Other
  Country: JP (occurrence: JP)
  Receive Date: 20201223
  Receipt Date: 20201223
  Transmission Date: 20210114
  Serious: Yes (Death, Hospitalization)
  Sender: FDA-Public Use
  Company Number: JP-FDC LIMITED-2103373

PATIENT
  Age: 76 Year
  Sex: Male

DRUGS (5)
  1. CIPROFLOXACIN. [Suspect]
     Active Substance: CIPROFLOXACIN
     Indication: PRODUCT USED FOR UNKNOWN INDICATION
     Route: 065
  2. CARBOPLATIN. [Concomitant]
     Active Substance: CARBOPLATIN
     Route: 065
  3. PREDNISOLONE. [Concomitant]
     Active Substance: PREDNISOLONE
     Route: 065
  4. PACLITAXEL. [Concomitant]
     Active Substance: PACLITAXEL
     Route: 065
  5. DURVALUMAB. [Concomitant]
     Active Substance: DURVALUMAB
     Route: 065

REACTIONS (1)
  - Condition aggravated [Fatal]
